FAERS Safety Report 12770364 (Version 1)
Quarter: 2016Q3

REPORT INFORMATION
  Report Type: Spontaneous
  Country: DK (occurrence: DK)
  Receive Date: 20160922
  Receipt Date: 20160922
  Transmission Date: 20161109
  Serious: Yes (Other)
  Sender: FDA-Public Use
  Company Number: DK-TEVA-693086ACC

PATIENT
  Age: 38 Year
  Sex: Female

DRUGS (1)
  1. LITAREX [Suspect]
     Active Substance: LITHIUM CITRATE
     Indication: BIPOLAR DISORDER
     Dosage: 24 MILLIMOL DAILY; STRENGTH: 6 MMOL
     Route: 048
     Dates: start: 20120629

REACTIONS (2)
  - Foetal death [Not Recovered/Not Resolved]
  - Exposure during pregnancy [Recovered/Resolved]

NARRATIVE: CASE EVENT DATE: 20160826
